FAERS Safety Report 5592589-4 (Version None)
Quarter: 2007Q4

REPORT INFORMATION
  Report Type: 
  Country: None (occurrence: None)
  Receive Date: 20071218
  Receipt Date: 20070820
  Transmission Date: 20080405
  Serious: Yes (Other)
  Sender: FDA-Public Use
  Company Number: 2007068935

PATIENT
  Sex: Female
  Weight: 97.1 kg

DRUGS (1)
  1. BEXTRA [Suspect]
     Dosage: 40 MG (20 MG, 2 IN 1 D), ORAL
     Route: 048
     Dates: start: 19980101, end: 20020101

REACTIONS (2)
  - CHEST PAIN [None]
  - HEADACHE [None]
